FAERS Safety Report 4642405-X (Version None)
Quarter: 2005Q2

REPORT INFORMATION
  Report Type: 
  Country: None (occurrence: None)
  Receive Date: 20050422
  Receipt Date: 20050411
  Transmission Date: 20051028
  Serious: Yes (Hospitalization)
  Sender: FDA-Public Use
  Company Number: FR-BRISTOL-MYERS SQUIBB COMPANY-12934774

PATIENT
  Age: 78 Year
  Sex: Male

DRUGS (1)
  1. GLUCOPHAGE [Suspect]
     Route: 048

REACTIONS (1)
  - FIXED ERUPTION [None]
